FAERS Safety Report 17523218 (Version 1)
Quarter: 2020Q1

REPORT INFORMATION
  Report Type: Spontaneous
  Country: US (occurrence: US)
  Receive Date: 20200311
  Receipt Date: 20200311
  Transmission Date: 20200409
  Serious: Yes (Other)
  Sender: FDA-Public Use
  Company Number: US-TEVA-2020-US-1196885

PATIENT
  Age: 34 Year
  Sex: Male

DRUGS (2)
  1. SECUKINUMAB. [Concomitant]
     Active Substance: SECUKINUMAB
     Indication: ANKYLOSING SPONDYLITIS
     Route: 065
  2. AMOXICILLIN/CLAVULANIC-ACID [Suspect]
     Active Substance: AMOXICILLIN\CLAVULANIC ACID
     Indication: ACUTE SINUSITIS
     Route: 065

REACTIONS (1)
  - Drug-induced liver injury [Recovered/Resolved]
